FAERS Safety Report 23733166 (Version 4)
Quarter: 2025Q2

REPORT INFORMATION
  Report Type: Spontaneous
  Country: US (occurrence: US)
  Receive Date: 20240411
  Receipt Date: 20250613
  Transmission Date: 20250717
  Serious: No
  Sender: PFIZER
  Company Number: US-PFIZER INC-PV202400046378

PATIENT
  Age: 8 Decade
  Sex: Female
  Weight: 79.365 kg

DRUGS (1)
  1. PAXLOVID [Suspect]
     Active Substance: NIRMATRELVIR\RITONAVIR
     Indication: COVID-19 treatment
     Dosage: IN THE MORNING AND THEN IN THE EVENING
     Route: 048
     Dates: start: 2022

REACTIONS (2)
  - Weight decreased [Recovered/Resolved with Sequelae]
  - Fatigue [Recovered/Resolved]
